FAERS Safety Report 8495285-9 (Version None)
Quarter: 2012Q3

REPORT INFORMATION
  Report Type: 
  Country: None (occurrence: None)
  Receive Date: 20120702
  Receipt Date: 20120702
  Transmission Date: 20120928
  Serious: Yes (Other)
  Sender: FDA-Public Use
  Company Number: None

PATIENT
  Sex: Male
  Weight: 77.1115 kg

DRUGS (5)
  1. CHANTIX [Suspect]
     Indication: SMOKING CESSATION THERAPY
     Dosage: DAILY PO
     Route: 048
     Dates: start: 20091208, end: 20100108
  2. CHANTIX [Suspect]
     Indication: SMOKING CESSATION THERAPY
     Dosage: DAILY PO
     Route: 048
     Dates: start: 20100315, end: 20100715
  3. OXYCODONE HCL [Concomitant]
  4. NAPROXEN [Concomitant]
  5. FLOMAX [Concomitant]

REACTIONS (3)
  - AGGRESSION [None]
  - STRESS [None]
  - EMOTIONAL DISORDER [None]
